FAERS Safety Report 23201346 (Version 1)
Quarter: 2023Q4

REPORT INFORMATION
  Report Type: Other
  Country: US (occurrence: US)
  Receive Date: 20231118
  Receipt Date: 20231118
  Transmission Date: 20240110
  Serious: No
  Sender: FDA-Public Use
  Company Number: US-TRAVERE-2023TVT00572

PATIENT
  Age: 65 Year
  Sex: Female

DRUGS (11)
  1. FILSPARI [Suspect]
     Active Substance: SPARSENTAN
     Indication: Haematuria
     Route: 048
     Dates: start: 20230927, end: 20231001
  2. D3 Plus K2 dots [Concomitant]
  3. Triamterene-hydrochlorothiazid [Concomitant]
  4. PROAIR DIGIHALER [Concomitant]
     Active Substance: ALBUTEROL SULFATE
  5. OXYCODONE HYDROCHLORIDE [Concomitant]
     Active Substance: OXYCODONE HYDROCHLORIDE
  6. NIFEDIPINE [Concomitant]
     Active Substance: NIFEDIPINE
  7. FUROSEMIDE [Concomitant]
     Active Substance: FUROSEMIDE
  8. HYDRALAZINE HCL [Concomitant]
     Active Substance: HYDRALAZINE HYDROCHLORIDE
  9. CLONIDINE [Concomitant]
     Active Substance: CLONIDINE
  10. BUTRANS [Concomitant]
     Active Substance: BUPRENORPHINE
  11. ATORVASTATIN CALCIUM [Concomitant]
     Active Substance: ATORVASTATIN CALCIUM

REACTIONS (3)
  - Dyspepsia [Recovered/Resolved]
  - Throat irritation [Recovered/Resolved]
  - Product use in unapproved indication [Unknown]
